FAERS Safety Report 10214073 (Version 1)
Quarter: 2014Q2

REPORT INFORMATION
  Report Type: Spontaneous
  Country: US (occurrence: None)
  Receive Date: 20140530
  Receipt Date: 20140530
  Transmission Date: 20141212
  Serious: Yes (Hospitalization, Other)
  Sender: FDA-Public Use
  Company Number: 2010S1000533

PATIENT
  Age: 48 Year
  Sex: Female

DRUGS (6)
  1. MOVIPREP [Suspect]
     Indication: COLONOSCOPY
     Route: 048
     Dates: start: 20080211
  2. METOPROLOL (METOPROLOL) [Concomitant]
  3. BENTYL (DICYCLOVERINE HYDROCHLORIDE) [Concomitant]
  4. SUPHEDRINE (PSUEDOPHEDRINE HYDROCHLORIDE, TRIPROLIDINE HYDROCHLORIDE) [Concomitant]
  5. NASACORT (TRIAMCINOLONE ACETONIDE) [Concomitant]
  6. PATANOL (OLOPATADINE HYDROCHLORIDE) [Concomitant]

REACTIONS (20)
  - Nausea [None]
  - Vomiting [None]
  - Diarrhoea [None]
  - Diarrhoea [None]
  - Weight decreased [None]
  - Renal failure acute [None]
  - Dehydration [None]
  - Gastroenteritis [None]
  - Hypertensive nephropathy [None]
  - Renal failure chronic [None]
  - Nephrogenic anaemia [None]
  - Hyperphosphataemia [None]
  - Constipation [None]
  - Dysgeusia [None]
  - Muscle spasms [None]
  - Peritoneal dialysis [None]
  - Myalgia [None]
  - Chills [None]
  - Pyrexia [None]
  - Asthenia [None]
